FAERS Safety Report 7540513-7 (Version None)
Quarter: 2011Q2

REPORT INFORMATION
  Report Type: 
  Country: None (occurrence: None)
  Receive Date: 20110610
  Receipt Date: 20110601
  Transmission Date: 20111010
  Serious: Yes (Hospitalization)
  Sender: FDA-Public Use
  Company Number: A0930809A

PATIENT
  Age: 59 Year
  Sex: Female

DRUGS (13)
  1. BACLOFEN [Concomitant]
  2. FLOMAX [Concomitant]
  3. INSULIN [Concomitant]
  4. MIRALAX [Concomitant]
  5. UNSPECIFIED MEDICATION [Suspect]
     Dosage: 10MG PER DAY
     Route: 048
     Dates: start: 20110201, end: 20110415
  6. MULTI-VITAMIN [Concomitant]
  7. CALCIUM CARBONATE [Concomitant]
  8. WELLBUTRIN [Suspect]
     Route: 048
     Dates: end: 20110415
  9. GABAPENTIN [Concomitant]
  10. TRAZODONE HCL [Concomitant]
  11. COPAXONE [Concomitant]
  12. FIBER [Concomitant]
  13. PROBIOTIC [Concomitant]

REACTIONS (10)
  - BLOOD GLUCOSE FLUCTUATION [None]
  - HYPOGLYCAEMIA [None]
  - SPEECH DISORDER [None]
  - MEMORY IMPAIRMENT [None]
  - EUPHORIC MOOD [None]
  - CONVULSION [None]
  - MULTIPLE SCLEROSIS RELAPSE [None]
  - ASTHENIA [None]
  - DISORIENTATION [None]
  - DRUG INEFFECTIVE [None]
